FAERS Safety Report 5520877-6 (Version None)
Quarter: 2007Q4

REPORT INFORMATION
  Report Type: 
  Country: None (occurrence: None)
  Receive Date: 20071119
  Receipt Date: 20071106
  Transmission Date: 20080405
  Serious: Yes (Congenital Anomaly)
  Sender: FDA-Public Use
  Company Number: B0495172A

PATIENT

DRUGS (4)
  1. AMOXICILLIN [Suspect]
  2. ACETAMINOPHEN [Suspect]
  3. METOCLOPRAMIDE [Suspect]
  4. SULPHACETAMIDE [Suspect]

REACTIONS (2)
  - DRUG EXPOSURE DURING PREGNANCY [None]
  - HIP DYSPLASIA [None]
